FAERS Safety Report 16241027 (Version 7)
Quarter: 2021Q2

REPORT INFORMATION
  Report Type: Report from Study
  Country: FR (occurrence: FR)
  Receive Date: 20190425
  Receipt Date: 20210602
  Transmission Date: 20210716
  Serious: Yes (Other)
  Sender: FDA-Public Use
  Company Number: PHHY2018FR074458

PATIENT
  Sex: Male
  Weight: 65 kg

DRUGS (1)
  1. VOTRIENT [Suspect]
     Active Substance: PAZOPANIB HYDROCHLORIDE
     Indication: RENAL CANCER METASTATIC
     Dosage: 800 MG, QD
     Route: 048
     Dates: start: 20180417, end: 20181030

REACTIONS (5)
  - Hepatic cytolysis [Recovered/Resolved]
  - Palmar-plantar erythrodysaesthesia syndrome [Recovered/Resolved]
  - Asthenia [Recovered/Resolved]
  - Hypertension [Recovered/Resolved]
  - Hypothyroidism [Recovered/Resolved]

NARRATIVE: CASE EVENT DATE: 201805
